FAERS Safety Report 24764243 (Version 1)
Quarter: 2024Q4

REPORT INFORMATION
  Report Type: Spontaneous
  Country: HR (occurrence: HR)
  Receive Date: 20241223
  Receipt Date: 20241223
  Transmission Date: 20250115
  Serious: Yes (Death)
  Sender: IMMUNOCORE
  Company Number: HR-Medison-000718

PATIENT

DRUGS (2)
  1. TEBENTAFUSP [Suspect]
     Active Substance: TEBENTAFUSP
     Indication: Metastatic ocular melanoma
     Dosage: 68 MICROGRAM/ WEEKLY
     Route: 042
     Dates: start: 202202
  2. TEBENTAFUSP [Suspect]
     Active Substance: TEBENTAFUSP
     Dosage: 68 MICROGRAM/WEEKLY
     Route: 042
     Dates: start: 20220922

REACTIONS (2)
  - Death [Fatal]
  - Disease progression [Unknown]
